FAERS Safety Report 5718954-X (Version None)
Quarter: 2008Q2

REPORT INFORMATION
  Report Type: 
  Country: None (occurrence: None)
  Receive Date: 20080425
  Receipt Date: 20080415
  Transmission Date: 20081010
  Serious: Yes (Hospitalization)
  Sender: FDA-Public Use
  Company Number: AU-ABBOTT-08P-008-0436791-00

PATIENT
  Sex: Female

DRUGS (3)
  1. VALPROIC ACID [Suspect]
     Indication: EPILEPSY
     Route: 065
  2. VALPROIC ACID [Suspect]
     Route: 065
  3. PHENYTOIN [Concomitant]
     Indication: DRUG USE FOR UNKNOWN INDICATION
     Route: 065

REACTIONS (4)
  - ABNORMAL BEHAVIOUR [None]
  - AGITATION [None]
  - DRUG LEVEL DECREASED [None]
  - HYPOMANIA [None]
